FAERS Safety Report 10662604 (Version 1)
Quarter: 2014Q4

REPORT INFORMATION
  Report Type: Spontaneous
  Country: US (occurrence: None)
  Receive Date: 20141217
  Receipt Date: 20141217
  Transmission Date: 20150529
  Serious: No
  Sender: FDA-Public Use
  Company Number: None

PATIENT
  Age: 49 Year
  Sex: Female
  Weight: 113.4 kg

DRUGS (1)
  1. PRAMIPEXOLE [Suspect]
     Active Substance: PRAMIPEXOLE
     Indication: RESTLESS LEGS SYNDROME
     Dosage: 2 TO 3 AS NEEDED
     Route: 048
     Dates: start: 2002

REACTIONS (7)
  - Middle insomnia [None]
  - Fatigue [None]
  - Joint swelling [None]
  - Dyspnoea [None]
  - Contrast media reaction [None]
  - Peripheral swelling [None]
  - Scan with contrast [None]

NARRATIVE: CASE EVENT DATE: 20141215
